FAERS Safety Report 5369962-2 (Version None)
Quarter: 2007Q2

REPORT INFORMATION
  Report Type: 
  Country: None (occurrence: None)
  Receive Date: 20070626
  Receipt Date: 20070620
  Transmission Date: 20071010
  Serious: Yes (Death, Hospitalization)
  Sender: FDA-Public Use
  Company Number: HQWYE265605NOV04

PATIENT
  Sex: Male
  Weight: 64.4 kg

DRUGS (8)
  1. RAPAMUNE [Suspect]
     Indication: PROPHYLAXIS AGAINST TRANSPLANT REJECTION
     Route: 048
     Dates: start: 20040617
  2. PREDNISONE TAB [Suspect]
     Route: 048
     Dates: start: 20040616
  3. SULFAMETHOXAZOLE AND TRIMETHOPRIM [Concomitant]
     Dosage: 800/160 DAILY
     Route: 048
     Dates: start: 20040621
  4. CLONIDINE [Concomitant]
     Route: 048
     Dates: start: 20040617
  5. FUROSEMIDE [Concomitant]
     Route: 048
     Dates: start: 20040917
  6. ATENOLOL [Concomitant]
     Route: 048
     Dates: start: 20040617
  7. CYCLOSPORINE [Suspect]
     Route: 048
     Dates: start: 20040616
  8. CIPROFIBRATE [Concomitant]
     Route: 048
     Dates: start: 20041015

REACTIONS (2)
  - PNEUMONIA [None]
  - VENOUS THROMBOSIS [None]
